FAERS Safety Report 6272692-6 (Version None)
Quarter: 2009Q3

REPORT INFORMATION
  Report Type: 
  Country: None (occurrence: None)
  Receive Date: 20090715
  Receipt Date: 20090715
  Transmission Date: 20100115
  Serious: Yes (Other)
  Sender: FDA-Public Use
  Company Number: None

PATIENT
  Age: 60 Year
  Sex: Female
  Weight: 68.9467 kg

DRUGS (1)
  1. ZICAM COLD REMEDY NASAL GEL MATRIXX INITIATIVES, INC [Suspect]
     Indication: NASOPHARYNGITIS
     Dosage: ONCE IN EACH NOSTRIL EVERY 4 HOURS NASAL
     Route: 045
     Dates: start: 20090306, end: 20090306

REACTIONS (2)
  - AGEUSIA [None]
  - ANOSMIA [None]
